FAERS Safety Report 25342356 (Version 1)
Quarter: 2025Q2

REPORT INFORMATION
  Report Type: Spontaneous
  Country: PL (occurrence: PL)
  Receive Date: 20250521
  Receipt Date: 20250521
  Transmission Date: 20250717
  Serious: Yes (Other)
  Sender: AMGEN
  Company Number: PL-AMGEN-POLSP2025095928

PATIENT
  Age: 62 Year
  Sex: Male

DRUGS (5)
  1. PANITUMUMAB [Suspect]
     Active Substance: PANITUMUMAB
     Indication: Colorectal cancer metastatic
     Route: 065
     Dates: start: 20241029
  2. PEGFILGRASTIM [Suspect]
     Active Substance: PEGFILGRASTIM
     Indication: Product used for unknown indication
     Route: 065
  3. OXALIPLATIN [Concomitant]
     Active Substance: OXALIPLATIN
     Indication: Colorectal cancer metastatic
     Route: 040
     Dates: start: 20241029
  4. Levofolic [Concomitant]
     Indication: Colorectal cancer metastatic
     Route: 040
     Dates: start: 20241029
  5. FLUOROURACIL [Concomitant]
     Active Substance: FLUOROURACIL
     Indication: Colorectal cancer metastatic
     Dosage: 600 MILLIGRAM/SQ. METER, Q2WK IV - 22 HOUR INFUSION DAY 1 - 2 14 DAY RHYTHM, 400 MG/M2 IV BOLUS DAY
     Route: 040
     Dates: start: 20241029

REACTIONS (5)
  - Metastases to liver [Unknown]
  - Neutropenia [Recovered/Resolved]
  - Rash maculo-papular [Unknown]
  - Hypomagnesaemia [Unknown]
  - Diarrhoea [Recovering/Resolving]
